FAERS Safety Report 24526510 (Version 1)
Quarter: 2024Q4

REPORT INFORMATION
  Report Type: Spontaneous
  Country: RU (occurrence: RU)
  Receive Date: 20241021
  Receipt Date: 20241021
  Transmission Date: 20250115
  Serious: No
  Sender: ROCHE
  Company Number: RU-ROCHE-3442652

PATIENT
  Sex: Female

DRUGS (2)
  1. VEMURAFENIB [Suspect]
     Active Substance: VEMURAFENIB
     Indication: Malignant melanoma
     Route: 065
     Dates: start: 20230328
  2. COBIMETINIB [Suspect]
     Active Substance: COBIMETINIB
     Indication: Malignant melanoma
     Dosage: DAYS 1-21, A 7 DAY BREAK
     Route: 065
     Dates: start: 20230328

REACTIONS (5)
  - Pyrexia [Unknown]
  - Pruritus [Unknown]
  - Arthralgia [Unknown]
  - Myalgia [Unknown]
  - Flushing [Unknown]
